FAERS Safety Report 4479791-X (Version None)
Quarter: 2004Q3

REPORT INFORMATION
  Report Type: 
  Country: None (occurrence: None)
  Receive Date: 20040923
  Receipt Date: 20040615
  Transmission Date: 20050211
  Serious: No
  Sender: FDA-Public Use
  Company Number: USA040362985

PATIENT
  Age: 35 Year
  Sex: Male
  Weight: 125 kg

DRUGS (8)
  1. FORTEO [Suspect]
     Indication: OSTEOPOROSIS
     Dosage: 20 UG DAY
     Dates: start: 20040318
  2. PREVACID [Concomitant]
  3. METHOTREXATE SODIUM [Concomitant]
  4. VIOXX [Concomitant]
  5. TESTOSTERONE [Concomitant]
  6. CHOLESTYRAMINE [Concomitant]
  7. TYLENOL [Concomitant]
  8. VALGANCICLOVIR [Concomitant]

REACTIONS (1)
  - EPISTAXIS [None]
